FAERS Safety Report 12111066 (Version 1)
Quarter: 2016Q1

REPORT INFORMATION
  Report Type: Spontaneous
  Country: US (occurrence: None)
  Receive Date: 20160224
  Receipt Date: 20160224
  Transmission Date: 20160526
  Serious: No
  Sender: FDA-Public Use
  Company Number: None

PATIENT
  Age: 29 Year
  Sex: Male
  Weight: 63.05 kg

DRUGS (4)
  1. MULTIVITAMIN [Concomitant]
     Active Substance: VITAMINS
  2. MAGNESIUM [Concomitant]
     Active Substance: MAGNESIUM
  3. DEXTROAMPHETAMINE. [Suspect]
     Active Substance: DEXTROAMPHETAMINE
     Indication: ATTENTION DEFICIT/HYPERACTIVITY DISORDER
     Route: 048
     Dates: start: 20160129, end: 20160222
  4. MELATONIN [Concomitant]
     Active Substance: MELATONIN

REACTIONS (5)
  - Product quality issue [None]
  - Headache [None]
  - Malaise [None]
  - Back pain [None]
  - Muscle tightness [None]

NARRATIVE: CASE EVENT DATE: 20160201
